FAERS Safety Report 4827812-4 (Version None)
Quarter: 2005Q4

REPORT INFORMATION
  Report Type: 
  Country: None (occurrence: None)
  Receive Date: 20051114
  Receipt Date: 20051114
  Transmission Date: 20060501
  Serious: Yes (Life-Threatening)
  Sender: FDA-Public Use
  Company Number: None

PATIENT
  Age: 73 Year
  Sex: Female

DRUGS (15)
  1. BENAZEPRIL HCL [Suspect]
     Indication: HYPERTENSION
     Dosage: PO
     Route: 048
  2. IRBESARTAN [Suspect]
     Indication: DIABETES MELLITUS
     Dosage: PO
     Route: 048
  3. CELEBREX [Concomitant]
  4. NORVASC [Concomitant]
  5. LOTREL [Concomitant]
  6. FUROSEMIDE [Concomitant]
  7. AMARYL [Concomitant]
  8. HYDROXYZINE [Concomitant]
  9. SINGULAIR [Concomitant]
  10. PRILOSEC [Concomitant]
  11. LOVASTATIN [Concomitant]
  12. METFORMIN [Concomitant]
  13. AVAPRO [Concomitant]
  14. OSCAL [Concomitant]
  15. SYNTHROID [Concomitant]

REACTIONS (3)
  - ANGIONEUROTIC OEDEMA [None]
  - PRODUCTIVE COUGH [None]
  - SWOLLEN TONGUE [None]
